FAERS Safety Report 8480802-5 (Version None)
Quarter: 2012Q3

REPORT INFORMATION
  Report Type: 
  Country: None (occurrence: None)
  Receive Date: 20120702
  Receipt Date: 20120620
  Transmission Date: 20120928
  Serious: Yes (Hospitalization, Other)
  Sender: FDA-Public Use
  Company Number: NO-BAYER-2012-061209

PATIENT
  Age: 22 Year
  Sex: Female

DRUGS (3)
  1. DROSPIRENONE AND ETHINYL ESTRADIOL [Suspect]
  2. YASMIN [Suspect]
     Indication: CONTRACEPTION
     Dosage: UNK
     Dates: start: 20090730, end: 20090902
  3. LORATADINE [Concomitant]

REACTIONS (20)
  - ABDOMINAL PAIN LOWER [None]
  - PYREXIA [None]
  - NAUSEA [None]
  - MUSCLE SPASMS [None]
  - FATIGUE [None]
  - PALPITATIONS [None]
  - TACHYCARDIA [None]
  - PAINFUL RESPIRATION [None]
  - ASTHENIA [None]
  - THROMBOSIS [None]
  - GENERAL PHYSICAL HEALTH DETERIORATION [None]
  - RASH GENERALISED [None]
  - DYSURIA [None]
  - VOMITING [None]
  - DYSPNOEA [None]
  - METRORRHAGIA [None]
  - PULMONARY EMBOLISM [None]
  - URINARY TRACT INFECTION [None]
  - WEIGHT DECREASED [None]
  - ENDOCRINE DISORDER [None]
